FAERS Safety Report 17094379 (Version 3)
Quarter: 2020Q1

REPORT INFORMATION
  Report Type: Spontaneous
  Country: US (occurrence: US)
  Receive Date: 20191129
  Receipt Date: 20200109
  Transmission Date: 20200409
  Serious: No
  Sender: FDA-Public Use
  Company Number: US-ALIMERA SCIENCES INC.-US-IL-2019-004519

PATIENT

DRUGS (1)
  1. ILUVIEN [Suspect]
     Active Substance: FLUOCINOLONE ACETONIDE
     Indication: PRODUCT USED FOR UNKNOWN INDICATION
     Dosage: 0.25 ?G, QD- UNKNOWN EYE
     Route: 031

REACTIONS (2)
  - Device issue [Unknown]
  - Product administration error [Unknown]
